FAERS Safety Report 18747891 (Version 1)
Quarter: 2021Q1

REPORT INFORMATION
  Report Type: Report from Study
  Country: US (occurrence: US)
  Receive Date: 20210115
  Receipt Date: 20210115
  Transmission Date: 20210419
  Serious: Yes (Other)
  Sender: FDA-Public Use
  Company Number: US-SEATTLE GENETICS-2020SGN04547

PATIENT
  Sex: Female

DRUGS (1)
  1. TUCATINIB [Suspect]
     Active Substance: TUCATINIB
     Indication: BREAST CANCER FEMALE
     Dosage: 50 MG, UNK

REACTIONS (5)
  - Suicidal ideation [Unknown]
  - Product prescribing issue [Unknown]
  - Bone pain [Unknown]
  - Surgery [Unknown]
  - Treatment failure [Unknown]
